FAERS Safety Report 6600499-6 (Version None)
Quarter: 2010Q1

REPORT INFORMATION
  Report Type: 
  Country: None (occurrence: None)
  Receive Date: 20100223
  Receipt Date: 20100223
  Transmission Date: 20100710
  Serious: Yes (Disabling, Other)
  Sender: FDA-Public Use
  Company Number: None

PATIENT
  Age: 26 Year
  Sex: Female
  Weight: 58.9676 kg

DRUGS (2)
  1. WELLBUTRIN XL [Suspect]
  2. TETRACYCLINE [Concomitant]

REACTIONS (3)
  - ACNE [None]
  - SCAR [None]
  - SKIN DISORDER [None]
